FAERS Safety Report 23757250 (Version 1)
Quarter: 2024Q2

REPORT INFORMATION
  Report Type: Spontaneous
  Country: US (occurrence: US)
  Receive Date: 20240418
  Receipt Date: 20240418
  Transmission Date: 20240715
  Serious: No
  Sender: FDA-Public Use
  Company Number: US-SA-SAC20240413000217

PATIENT
  Age: 12 Year
  Sex: Female

DRUGS (5)
  1. DUPIXENT [Suspect]
     Active Substance: DUPILUMAB
     Indication: Dermatitis
     Dosage: 200 MG, QOW
     Route: 058
     Dates: start: 20220730
  2. EPINEPHRINE [Concomitant]
     Active Substance: EPINEPHRINE
  3. GENOTROPIN [Concomitant]
     Active Substance: SOMATROPIN
  4. MOMETASONE [Concomitant]
     Active Substance: MOMETASONE
  5. NORDITROPIN [Concomitant]
     Active Substance: SOMATROPIN

REACTIONS (3)
  - Dermatitis [Unknown]
  - Pruritus [Unknown]
  - Product use in unapproved indication [Unknown]

NARRATIVE: CASE EVENT DATE: 20220730
